FAERS Safety Report 14426074 (Version 2)
Quarter: 2018Q1

REPORT INFORMATION
  Report Type: Spontaneous
  Country: US (occurrence: US)
  Receive Date: 20180123
  Receipt Date: 20180126
  Transmission Date: 20180509
  Serious: No
  Sender: FDA-Public Use
  Company Number: US-VIFOR (INTERNATIONAL) INC.-VIT-2017-14459

PATIENT
  Age: 61 Year
  Sex: Male
  Weight: 76 kg

DRUGS (19)
  1. CICLOSPORIN [Concomitant]
     Active Substance: CYCLOSPORINE
     Route: 048
     Dates: start: 20170221
  2. MAGNESIUM OXIDE. [Concomitant]
     Active Substance: MAGNESIUM OXIDE
     Route: 048
     Dates: start: 20170221
  3. FUROSEMIDE. [Concomitant]
     Active Substance: FUROSEMIDE
     Dosage: 40 MG EVERY NIGHT
     Route: 048
     Dates: start: 20170221
  4. MIRCERA [Suspect]
     Active Substance: METHOXY POLYETHYLENE GLYCOL-EPOETIN BETA
     Route: 040
     Dates: start: 20171121
  5. VITAMINS NOS [Concomitant]
     Active Substance: VITAMINS
     Route: 048
     Dates: start: 20170221
  6. MIRCERA [Suspect]
     Active Substance: METHOXY POLYETHYLENE GLYCOL-EPOETIN BETA
     Indication: PRODUCT USED FOR UNKNOWN INDICATION
     Route: 040
     Dates: start: 20171118
  7. LIQUACEL [Concomitant]
     Dosage: EVERY SCHEDULE DIALYSIS TREATMENT
     Route: 048
     Dates: start: 20170227
  8. NEXIUM [Concomitant]
     Active Substance: ESOMEPRAZOLE MAGNESIUM
     Route: 048
     Dates: start: 20170221
  9. RENVELA [Concomitant]
     Active Substance: SEVELAMER CARBONATE
     Dosage: 800 MG/2 TIMES
     Route: 048
     Dates: start: 20170221
  10. VENOFER [Concomitant]
     Active Substance: IRON SUCROSE
     Dosage: WEEKLY ON 1ST SCHEDULE TREATMENT
     Route: 042
     Dates: start: 20171216
  11. HYDRALAZINE [Concomitant]
     Active Substance: HYDRALAZINE HYDROCHLORIDE
     Route: 048
     Dates: start: 20170221
  12. FUROSEMIDE. [Concomitant]
     Active Substance: FUROSEMIDE
     Dosage: 80 MG EVERY MORNING
     Route: 048
     Dates: start: 20170221
  13. MIRCERA [Suspect]
     Active Substance: METHOXY POLYETHYLENE GLYCOL-EPOETIN BETA
     Route: 040
     Dates: start: 20171124
  14. ULORIC [Concomitant]
     Active Substance: FEBUXOSTAT
     Route: 048
     Dates: start: 20170221
  15. CARVEDILOL. [Concomitant]
     Active Substance: CARVEDILOL
     Route: 048
     Dates: start: 20170221
  16. FINASTERIDE. [Concomitant]
     Active Substance: FINASTERIDE
     Dosage: AT BED TIME
     Route: 048
     Dates: start: 20170221
  17. ACETYLSALICYLIC ACID [Concomitant]
     Active Substance: ASPIRIN
     Route: 048
     Dates: start: 20170221
  18. ZEMPLAR MDV [Concomitant]
     Dosage: EVERY SCHEDULE DIALYSIS TREATMENT
     Route: 040
     Dates: start: 20170523
  19. SIMVASTATIN. [Concomitant]
     Active Substance: SIMVASTATIN
     Route: 048
     Dates: start: 20170221

REACTIONS (2)
  - Inappropriate schedule of drug administration [Recovered/Resolved]
  - Drug dose omission [Recovered/Resolved]

NARRATIVE: CASE EVENT DATE: 201711
